FAERS Safety Report 22896779 (Version 4)
Quarter: 2023Q4

REPORT INFORMATION
  Report Type: Spontaneous
  Country: AR (occurrence: AR)
  Receive Date: 20230901
  Receipt Date: 20231121
  Transmission Date: 20240110
  Serious: Yes (Other)
  Sender: FDA-Public Use
  Company Number: AR-002147023-NVSC2020AR301077

PATIENT
  Age: 8 Year
  Sex: Female

DRUGS (4)
  1. OMNITROPE [Suspect]
     Active Substance: SOMATROPIN
     Indication: Growth hormone deficiency
     Dosage: 0.8 MG, QD
     Route: 058
     Dates: start: 20191009
  2. OMNITROPE [Suspect]
     Active Substance: SOMATROPIN
     Dosage: 1.1 MG, QD
     Route: 058
     Dates: start: 20191009
  3. OMNITROPE [Suspect]
     Active Substance: SOMATROPIN
     Dosage: 1 MG, QD
     Route: 058
     Dates: start: 20210305
  4. OMNITROPE [Suspect]
     Active Substance: SOMATROPIN
     Dosage: 1.3 MG
     Route: 065

REACTIONS (24)
  - Growth failure [Unknown]
  - Weight decreased [Unknown]
  - Weight gain poor [Not Recovered/Not Resolved]
  - Injection site pain [Unknown]
  - Vaccination site pain [Unknown]
  - Tremor [Unknown]
  - Breast pain [Unknown]
  - Scab [Unknown]
  - Chest pain [Unknown]
  - Injection site swelling [Unknown]
  - Injection site bruising [Unknown]
  - Urinary incontinence [Unknown]
  - Decreased appetite [Unknown]
  - Reading disorder [Unknown]
  - Product availability issue [Unknown]
  - Expired product administered [Unknown]
  - Pain [Unknown]
  - Asthenia [Unknown]
  - Abdominal pain [Unknown]
  - Bone pain [Unknown]
  - Dysgraphia [Unknown]
  - Asthma [Unknown]
  - Dyslexia [Unknown]
  - Illness [Unknown]

NARRATIVE: CASE EVENT DATE: 20201025
